FAERS Safety Report 25497721 (Version 1)
Quarter: 2025Q3

REPORT INFORMATION
  Report Type: Spontaneous
  Country: EU (occurrence: EU)
  Receive Date: 20250701
  Receipt Date: 20250701
  Transmission Date: 20251020
  Serious: Yes (Other)
  Sender: CHEPLAPHARM
  Company Number: None

PATIENT
  Age: 49 Year
  Sex: Male
  Weight: 90 kg

DRUGS (3)
  1. QUETIAPINE [Suspect]
     Active Substance: QUETIAPINE
     Route: 048
     Dates: start: 202505, end: 202505
  2. NORMABEL [Suspect]
     Active Substance: DIAZEPAM
     Dosage: DAILY DOSE: 150 MILLIGRAM
     Route: 048
     Dates: start: 202505, end: 202505
  3. DULOXETINE [Suspect]
     Active Substance: DULOXETINE
     Route: 048
     Dates: start: 202505, end: 202505

REACTIONS (4)
  - Suicide attempt [Unknown]
  - Intentional overdose [Unknown]
  - Toxicity to various agents [Unknown]
  - Somnolence [Unknown]

NARRATIVE: CASE EVENT DATE: 20250501
